FAERS Safety Report 5980037-1 (Version None)
Quarter: 2008Q4

REPORT INFORMATION
  Report Type: 
  Country: None (occurrence: None)
  Receive Date: 20081205
  Receipt Date: 20080221
  Transmission Date: 20090506
  Serious: No
  Sender: FDA-Public Use
  Company Number: US-AMGEN-KDL266508

PATIENT
  Sex: Male

DRUGS (1)
  1. ENBREL [Suspect]
     Indication: PSORIASIS
     Route: 058
     Dates: start: 20080115

REACTIONS (6)
  - ACNE [None]
  - DYSPNOEA [None]
  - HEADACHE [None]
  - INJECTION SITE HAEMATOMA [None]
  - THERAPEUTIC RESPONSE DELAYED [None]
  - UPPER RESPIRATORY TRACT CONGESTION [None]
